FAERS Safety Report 8931735 (Version 2)
Quarter: 2012Q4

REPORT INFORMATION
  Report Type: 
  Country: US (occurrence: US)
  Receive Date: 20121128
  Receipt Date: 20121227
  Transmission Date: 20130627
  Serious: Yes (Life-Threatening, Hospitalization)
  Sender: FDA-Public Use
  Company Number: US-AMGEN-USASP2012076113

PATIENT
  Age: 48 Year
  Sex: Female

DRUGS (11)
  1. NEUPOGEN [Suspect]
     Indication: PRODUCT USED FOR UNKNOWN INDICATION
     Dosage: 480 IU, UNK
     Route: 058
  2. TRASTUZUMAB [Suspect]
     Indication: BREAST CANCER
     Dosage: 135 mg, qd
     Route: 042
     Dates: start: 20031008, end: 20040616
  3. DOCETAXEL [Suspect]
     Indication: BREAST CANCER
     Dosage: 153 mg, q3wk
     Route: 042
     Dates: start: 20031009, end: 20031210
  4. DOXORUBICIN [Suspect]
     Indication: BREAST CANCER
     Dosage: 92 mg, q3wk
     Route: 042
     Dates: start: 20030716, end: 20030917
  5. CYCLOPHOSPHAMIDE [Concomitant]
     Indication: BREAST CANCER
     Dosage: 92 mg, q3wk
     Dates: start: 20030716, end: 20030917
  6. COMPAZINE                          /00013302/ [Concomitant]
     Dosage: UNK
     Dates: start: 20030714
  7. ZOFRAN                             /00955301/ [Concomitant]
     Dosage: UNK
     Dates: start: 20030714
  8. VICODIN [Concomitant]
     Dosage: UNK
     Dates: start: 20031013
  9. DECADRON                           /00016001/ [Concomitant]
     Dosage: UNK
     Dates: start: 20031008, end: 20031010
  10. NEXIUM                             /01479302/ [Concomitant]
     Dosage: UNK
     Dates: start: 20031017
  11. NYSTATIN [Concomitant]
     Dosage: UNK
     Dates: start: 20031017

REACTIONS (5)
  - Febrile neutropenia [Recovered/Resolved]
  - Cardiac failure congestive [Not Recovered/Not Resolved]
  - Urinary tract infection [Unknown]
  - Left ventricular dysfunction [Recovered/Resolved with Sequelae]
  - Cardiomyopathy [Recovered/Resolved with Sequelae]
